FAERS Safety Report 4815398-X (Version None)
Quarter: 2005Q4

REPORT INFORMATION
  Report Type: 
  Country: None (occurrence: None)
  Receive Date: 20051027
  Receipt Date: 20051015
  Transmission Date: 20060501
  Serious: Yes (Other)
  Sender: FDA-Public Use
  Company Number: 2005120403

PATIENT
  Age: 63 Year
  Sex: Female
  Weight: 80.2867 kg

DRUGS (2)
  1. LIPITOR [Suspect]
     Indication: BLOOD CHOLESTEROL INCREASED
     Dosage: 10 MG (10 MG, 1 IN 1 D)
  2. LOTREL [Concomitant]

REACTIONS (7)
  - ANAEMIA [None]
  - BONE PAIN [None]
  - MUSCLE SPASMS [None]
  - MYALGIA [None]
  - MYELOFIBROSIS [None]
  - PYREXIA [None]
  - WHITE BLOOD CELL COUNT DECREASED [None]
